FAERS Safety Report 17611161 (Version 1)
Quarter: 2020Q2

REPORT INFORMATION
  Report Type: Report from Study
  Country: US (occurrence: US)
  Receive Date: 20200401
  Receipt Date: 20200401
  Transmission Date: 20200713
  Serious: Yes (Other)
  Sender: FDA-Public Use
  Company Number: US-MYLANLABS-2020M1034159

PATIENT

DRUGS (5)
  1. RANITIDINE. [Concomitant]
     Active Substance: RANITIDINE
     Indication: PRODUCT USED FOR UNKNOWN INDICATION
     Route: 065
  2. LMB 100 [Interacting]
     Active Substance: LMB-100
     Indication: ADENOCARCINOMA PANCREAS
     Dosage: INFUSIONS OVER 30 MINUTES ON DAYS 1, 3 AND 5 OF EACH 21-DAY TREATMENT CYCLE
     Route: 042
  3. DIPHENHYDRAMINE. [Concomitant]
     Active Substance: DIPHENHYDRAMINE
     Indication: PRODUCT USED FOR UNKNOWN INDICATION
     Dosage: UNK
     Route: 065
  4. PACLITAXEL. [Suspect]
     Active Substance: PACLITAXEL
     Indication: ADENOCARCINOMA PANCREAS
     Dosage: INFUSIONS ON DAYS 1 AND 8 OF EACH 21-DAY TREATMENT CYCLE
     Route: 042
  5. ACETAMINOPHEN. [Concomitant]
     Active Substance: ACETAMINOPHEN
     Indication: PRODUCT USED FOR UNKNOWN INDICATION
     Dosage: UNK
     Route: 065

REACTIONS (8)
  - Tachycardia [Recovered/Resolved]
  - Drug interaction [Recovered/Resolved]
  - Weight increased [Recovered/Resolved]
  - Hypoalbuminaemia [Recovered/Resolved]
  - Oedema [Recovered/Resolved]
  - Hypophosphataemia [Recovered/Resolved]
  - Dizziness [Recovered/Resolved]
  - Capillary leak syndrome [Recovered/Resolved]
